FAERS Safety Report 6927734-9 (Version None)
Quarter: 2010Q3

REPORT INFORMATION
  Report Type: 
  Country: None (occurrence: None)
  Receive Date: 20100816
  Receipt Date: 20100816
  Transmission Date: 20110219
  Serious: Yes (Hospitalization)
  Sender: FDA-Public Use
  Company Number: None

PATIENT
  Age: 47 Year
  Sex: Female
  Weight: 56.6 kg

DRUGS (15)
  1. FUROSEMIDE 40 MG NOT AVAILABLE [Suspect]
     Indication: OEDEMA PERIPHERAL
     Dosage: 40 MG BID PO, 5 DAYS AT INCREASED
     Route: 048
     Dates: start: 20100808, end: 20100813
  2. GABAPENTIN [Concomitant]
  3. LASIX [Concomitant]
  4. PRILOSEC [Concomitant]
  5. ASPIRIN [Concomitant]
  6. IBUPROFEN [Concomitant]
  7. OXYCODONE [Concomitant]
  8. METHADONE HCL [Concomitant]
  9. VALTREX [Concomitant]
  10. SPIRONOLACTONE [Concomitant]
  11. SENNA [Concomitant]
  12. VITAMIN B-12 [Concomitant]
  13. VITAMIN B6 [Concomitant]
  14. TRAZODONE HCL [Concomitant]
  15. CELEXA [Concomitant]

REACTIONS (6)
  - CONDITION AGGRAVATED [None]
  - DRUG HYPERSENSITIVITY [None]
  - OEDEMA [None]
  - PAIN [None]
  - RASH ERYTHEMATOUS [None]
  - RASH MACULO-PAPULAR [None]
